FAERS Safety Report 8616376-5 (Version None)
Quarter: 2012Q3

REPORT INFORMATION
  Report Type: 
  Country: None (occurrence: None)
  Receive Date: 20120823
  Receipt Date: 20120816
  Transmission Date: 20120928
  Serious: No
  Sender: FDA-Public Use
  Company Number: CA-009507513-1206USA01908

PATIENT

DRUGS (3)
  1. SINEMET CR [Suspect]
     Dosage: 50/200
     Route: 048
     Dates: start: 20120605
  2. SINEMET CR [Suspect]
     Indication: PARKINSON'S DISEASE
     Dosage: 50/200
     Route: 048
     Dates: start: 20080101
  3. SINEMET CR [Suspect]
     Dosage: 50/200
     Route: 048
     Dates: start: 20120201, end: 20120601

REACTIONS (4)
  - PARKINSON'S DISEASE [None]
  - OVERDOSE [None]
  - PRODUCT QUALITY ISSUE [None]
  - ADVERSE EVENT [None]
